FAERS Safety Report 10025499 (Version 1)
Quarter: 2014Q1

REPORT INFORMATION
  Report Type: Spontaneous
  Country: US (occurrence: None)
  Receive Date: 20140319
  Receipt Date: 20140319
  Transmission Date: 20141002
  Serious: Yes (Other)
  Sender: FDA-Public Use
  Company Number: None

PATIENT
  Age: 46 Year
  Sex: Female
  Weight: 88.5 kg

DRUGS (5)
  1. CYTOXAN [Suspect]
     Indication: BREAST CANCER
     Dosage: Q2W X 4
     Route: 042
     Dates: start: 20101102, end: 20101214
  2. ABRAXANE [Concomitant]
  3. CARBOPLATIN [Concomitant]
  4. AVASTIN [Concomitant]
  5. ADRIAMYCIN [Concomitant]

REACTIONS (5)
  - Transitional cell carcinoma [None]
  - Micturition urgency [None]
  - Incontinence [None]
  - Pollakiuria [None]
  - Urinary bladder polyp [None]
